FAERS Safety Report 5296689-8 (Version None)
Quarter: 2007Q2

REPORT INFORMATION
  Report Type: 
  Country: None (occurrence: None)
  Receive Date: 20070413
  Receipt Date: 20070406
  Transmission Date: 20071010
  Serious: Yes (Other)
  Sender: FDA-Public Use
  Company Number: US-PFIZER INC-2007017129

PATIENT
  Sex: Female
  Weight: 95.3 kg

DRUGS (5)
  1. NORVASC [Suspect]
     Indication: HYPERTENSION
  2. LIPITOR [Suspect]
     Indication: BLOOD CHOLESTEROL INCREASED
  3. CADUET [Suspect]
  4. AROMASIN [Suspect]
  5. ANASTROZOLE [Concomitant]

REACTIONS (3)
  - BREAST CANCER [None]
  - UNEVALUABLE EVENT [None]
  - VISUAL DISTURBANCE [None]
